FAERS Safety Report 12697310 (Version 1)
Quarter: 2016Q3

REPORT INFORMATION
  Report Type: Spontaneous
  Country: None (occurrence: None)
  Receive Date: 20160829
  Receipt Date: 20160829
  Transmission Date: 20161109
  Serious: Yes (Hospitalization)
  Sender: FDA-Public Use
  Company Number: None

PATIENT

DRUGS (1)
  1. SKYLA [Suspect]
     Active Substance: LEVONORGESTREL
     Indication: CONTRACEPTION
     Dosage: EVERY 3 YEARS INSERTED IN UTERUS
     Route: 015
     Dates: start: 20151113, end: 20160826

REACTIONS (17)
  - Acne [None]
  - Irritability [None]
  - Ovarian cyst [None]
  - Diarrhoea [None]
  - Muscle spasms [None]
  - Cystitis [None]
  - Nausea [None]
  - Urinary tract infection [None]
  - Vomiting [None]
  - Weight increased [None]
  - Abdominal pain [None]
  - Pyelonephritis [None]
  - Amenorrhoea [None]
  - Vision blurred [None]
  - Arthralgia [None]
  - Menorrhagia [None]
  - Depression [None]

NARRATIVE: CASE EVENT DATE: 20160819
